FAERS Safety Report 13437487 (Version 5)
Quarter: 2018Q4

REPORT INFORMATION
  Report Type: Spontaneous
  Country: US (occurrence: US)
  Receive Date: 20170412
  Receipt Date: 20181127
  Transmission Date: 20190204
  Serious: No
  Sender: FDA-Public Use
  Company Number: US-SA-2016SA210509

PATIENT

DRUGS (1)
  1. ALLEGRA ALLERGY [Suspect]
     Active Substance: FEXOFENADINE HYDROCHLORIDE
     Dosage: UNK UNK,UNK
     Route: 048

REACTIONS (6)
  - Laziness [Unknown]
  - Therapeutic response unexpected [Unknown]
  - Lacrimation increased [Unknown]
  - Insomnia [Unknown]
  - Vomiting [Unknown]
  - Rhinorrhoea [Unknown]
